FAERS Safety Report 18521026 (Version 1)
Quarter: 2020Q4

REPORT INFORMATION
  Report Type: Spontaneous
  Country: FR (occurrence: FR)
  Receive Date: 20201119
  Receipt Date: 20201119
  Transmission Date: 20210114
  Serious: Yes (Hospitalization)
  Sender: FDA-Public Use
  Company Number: FR-TEVA-2020-FR-1849619

PATIENT
  Age: 59 Year
  Sex: Female
  Weight: 67 kg

DRUGS (3)
  1. TECENTRIQ [Concomitant]
     Active Substance: ATEZOLIZUMAB
     Route: 042
  2. CARBOPLATINE [Concomitant]
     Active Substance: CARBOPLATIN
     Route: 042
  3. ETOPOSIDE. [Suspect]
     Active Substance: ETOPOSIDE
     Indication: NEUROENDOCRINE TUMOUR OF THE LUNG
     Dosage: 100 MG/M2
     Route: 042
     Dates: start: 20200826, end: 20200826

REACTIONS (3)
  - Erythema [Recovered/Resolved]
  - Seizure [Recovered/Resolved]
  - Anaphylactic reaction [Recovered/Resolved]

NARRATIVE: CASE EVENT DATE: 20200826
